FAERS Safety Report 7902368-8 (Version None)
Quarter: 2011Q4

REPORT INFORMATION
  Report Type: 
  Country: None (occurrence: None)
  Receive Date: 20111108
  Receipt Date: 20111101
  Transmission Date: 20120403
  Serious: Yes (Other)
  Sender: FDA-Public Use
  Company Number: SK-UCBSA-044296

PATIENT
  Age: 61 Year
  Sex: Female

DRUGS (7)
  1. CIMZIA [Suspect]
     Indication: RHEUMATOID ARTHRITIS
     Route: 058
     Dates: start: 20100812, end: 20110824
  2. METHOTREXATE [Concomitant]
     Dates: start: 20050101
  3. CIMZIA [Suspect]
     Dosage: CLINICAL TRIAL 2005-2010
     Route: 058
  4. FOLIC ACID [Concomitant]
     Dosage: 2 TABLETS PER WEEK
     Dates: start: 20050101
  5. NOLPAZA [Concomitant]
  6. LAGOSA [Concomitant]
  7. ARTHROTEC [Concomitant]
     Dosage: 2X1
     Dates: start: 20090101

REACTIONS (1)
  - MYCOBACTERIUM TUBERCULOSIS COMPLEX TEST POSITIVE [None]
